FAERS Safety Report 4726510-5 (Version None)
Quarter: 2005Q3

REPORT INFORMATION
  Report Type: 
  Country: None (occurrence: None)
  Receive Date: 20050726
  Receipt Date: 20050719
  Transmission Date: 20060218
  Serious: Yes (Other)
  Sender: FDA-Public Use
  Company Number: 2005103749

PATIENT
  Sex: Male

DRUGS (4)
  1. CARDURA XL [Suspect]
     Indication: BENIGN PROSTATIC HYPERPLASIA
     Dosage: 8 MG (4 MG, QD INTERVAL: EVERY DAY), ORAL
     Route: 048
  2. CARDURA XL [Suspect]
     Indication: NOCTURIA
     Dosage: 8 MG (4 MG, QD INTERVAL: EVERY DAY), ORAL
     Route: 048
  3. TOLTERODINE TARTRATE [Suspect]
     Indication: BENIGN PROSTATIC HYPERPLASIA
     Dosage: 2 MG (2 MG, EVERY DAY), ORAL
     Route: 048
  4. TOLTERODINE TARTRATE [Suspect]
     Indication: NOCTURIA
     Dosage: 4 MG (4 MG, QD INTERVAL: EVERY DAY), ORAL
     Route: 048

REACTIONS (5)
  - ABDOMINAL PAIN [None]
  - BENIGN COLONIC NEOPLASM [None]
  - CONDITION AGGRAVATED [None]
  - DIZZINESS [None]
  - STOOL ANALYSIS ABNORMAL [None]
